FAERS Safety Report 21617900 (Version 3)
Quarter: 2022Q4

REPORT INFORMATION
  Report Type: Report from Study
  Country: MX (occurrence: MX)
  Receive Date: 20221119
  Receipt Date: 20221229
  Transmission Date: 20230112
  Serious: Yes (Death, Hospitalization, Other)
  Sender: FDA-Public Use
  Company Number: MX-002147023-NVSC2022MX260465

PATIENT
  Age: 87 Year
  Sex: Female
  Weight: 50 kg

DRUGS (5)
  1. ENTRESTO [Suspect]
     Active Substance: SACUBITRIL\VALSARTAN
     Indication: Cardiac failure
     Dosage: 0.5 DOSAGE FORM, Q12H (EVERY 12HOURS)
     Route: 048
     Dates: start: 2017
  2. ENTRESTO [Suspect]
     Active Substance: SACUBITRIL\VALSARTAN
     Indication: Arrhythmia
     Dosage: 0.5 DOSAGE FORM, BID (HALF TABLET EVERY 12 HOURS) (STARTED TREATMENT IN 2018-2019)
     Route: 048
  3. ENTRESTO [Suspect]
     Active Substance: SACUBITRIL\VALSARTAN
     Indication: Atrial fibrillation
     Dosage: 100 MG, QD
     Route: 048
     Dates: start: 20220102
  4. ENTRESTO [Suspect]
     Active Substance: SACUBITRIL\VALSARTAN
     Dosage: UNK
     Route: 048
     Dates: start: 2022
  5. ENTRESTO [Suspect]
     Active Substance: SACUBITRIL\VALSARTAN
     Dosage: 0.5 DOSAGE FORM, Q12H
     Route: 048
     Dates: end: 20220811

REACTIONS (7)
  - Cardiac failure [Fatal]
  - Atrial fibrillation [Fatal]
  - Cardiogenic shock [Fatal]
  - Interstitial lung disease [Unknown]
  - Blood pressure decreased [Unknown]
  - Product use issue [Unknown]
  - Wrong technique in product usage process [Unknown]

NARRATIVE: CASE EVENT DATE: 20220102
